FAERS Safety Report 9562379 (Version 1)
Quarter: 2013Q3

REPORT INFORMATION
  Report Type: Spontaneous
  Country: US (occurrence: None)
  Receive Date: 20130926
  Receipt Date: 20130926
  Transmission Date: 20140515
  Serious: Yes (Hospitalization)
  Sender: FDA-Public Use
  Company Number: None

PATIENT
  Age: 69 Year
  Sex: Male
  Weight: 89.8 kg

DRUGS (2)
  1. CETUXIMAB (ERBITUX) (714692) [Suspect]
  2. HCTZ [Concomitant]

REACTIONS (9)
  - Asthenia [None]
  - Dyspnoea [None]
  - Hypophagia [None]
  - Local swelling [None]
  - Pulmonary embolism [None]
  - Deep vein thrombosis [None]
  - Unresponsive to stimuli [None]
  - Subdural haematoma [None]
  - Respiratory failure [None]
